FAERS Safety Report 5866857-2 (Version None)
Quarter: 2008Q3

REPORT INFORMATION
  Report Type: 
  Country: None (occurrence: None)
  Receive Date: 20080827
  Receipt Date: 20080818
  Transmission Date: 20090109
  Serious: Yes (Hospitalization)
  Sender: FDA-Public Use
  Company Number: 2008AP002057

PATIENT
  Age: 60 Year
  Sex: Female

DRUGS (6)
  1. PAROXETINE HCL [Suspect]
     Indication: DEPRESSION
  2. FENTANYL-100 [Suspect]
     Indication: ANAESTHESIA
     Dosage: 200 UG QH; 800 UG; 50 UG; 100 UG; QH
  3. PROPOFOL [Concomitant]
  4. ATRACURIUM BESYLATE [Concomitant]
  5. ISOFLURANE [Concomitant]
  6. THYROXIN T3 (THYROXIN T3) [Concomitant]

REACTIONS (13)
  - BLOOD ALBUMIN DECREASED [None]
  - BLOOD ALKALINE PHOSPHATASE DECREASED [None]
  - BLOOD CREATININE DECREASED [None]
  - DRUG INTERACTION [None]
  - HAEMODILUTION [None]
  - HAEMOGLOBIN DECREASED [None]
  - HYPERTENSION [None]
  - MALIGNANT FIBROUS HISTIOCYTOMA [None]
  - OPERATIVE HAEMORRHAGE [None]
  - PLATELET COUNT DECREASED [None]
  - POST PROCEDURAL COMPLICATION [None]
  - SEROTONIN SYNDROME [None]
  - THYROID DISORDER [None]
